FAERS Safety Report 9038636 (Version 1)
Quarter: 2013Q1

REPORT INFORMATION
  Report Type: Report from Study
  Country: US (occurrence: US)
  Receive Date: 20130129
  Receipt Date: 20130129
  Transmission Date: 20140127
  Serious: No
  Sender: FDA-Public Use
  Company Number: US-ABBOTT-12P-163-0935280-00

PATIENT
  Age: 72 Year
  Sex: Female

DRUGS (5)
  1. HUMIRA 40 MG/0.8 ML PEN [Suspect]
     Indication: PSORIASIS
     Dates: start: 200202
  2. GLEEVEC [Concomitant]
     Indication: LEUKAEMIA
     Dosage: 400MG IN THE AM
  3. GLEEVEC [Concomitant]
     Dosage: 200MG AT BEDTIME
  4. METOPROLOL [Concomitant]
     Indication: HYPERTENSION
     Dosage: 25MG DAILY
  5. CELEXA [Concomitant]
     Indication: DEPRESSION
     Dosage: 40MG DAILY

REACTIONS (1)
  - Psoriasis [Not Recovered/Not Resolved]
